FAERS Safety Report 18505631 (Version 1)
Quarter: 2020Q4

REPORT INFORMATION
  Report Type: Spontaneous
  Country: FR (occurrence: FR)
  Receive Date: 20201116
  Receipt Date: 20201116
  Transmission Date: 20210114
  Serious: Yes (Other)
  Sender: FDA-Public Use
  Company Number: NVSC2020FR299926

PATIENT
  Sex: Male
  Weight: 90 kg

DRUGS (1)
  1. TACROLIMUS. [Suspect]
     Active Substance: TACROLIMUS
     Indication: IMMUNOSUPPRESSION
     Dosage: 2.5 MG, QD
     Route: 048
     Dates: start: 20171004

REACTIONS (1)
  - Lip neoplasm [Not Recovered/Not Resolved]

NARRATIVE: CASE EVENT DATE: 20190905
